FAERS Safety Report 5003602-7 (Version None)
Quarter: 2006Q2

REPORT INFORMATION
  Report Type: 
  Country: None (occurrence: None)
  Receive Date: 20060511
  Receipt Date: 20060503
  Transmission Date: 20061013
  Serious: Yes (Hospitalization, Other)
  Sender: FDA-Public Use
  Company Number: THQ2006A00280

PATIENT
  Age: 67 Year
  Sex: Female

DRUGS (13)
  1. ACTOS [Suspect]
     Indication: DIABETES MELLITUS
     Dosage: 45 MG (45 MG, 1 IN 1 D)
     Dates: end: 20031001
  2. LIPITOR [Concomitant]
  3. ACETYLSALICYLIC ACID ENTERIC COATED (ACETYLSALICYLIC ACID) [Concomitant]
  4. INDAPAMIDE [Concomitant]
  5. INDERAL [Concomitant]
  6. IPRATROPIUM BROMIDE, SALBUTAMOL SULFATE [Concomitant]
  7. NITROGLYCERIN TRANSDERMAL SYSTEM (GLYCERYL TRINITRATE) [Concomitant]
  8. LASIX [Concomitant]
  9. ADVAIR DISKUS (FLUTICASONE PROPIONATE, SALMETEROL XINAFOATE) [Concomitant]
  10. MOBIC [Concomitant]
  11. TYLENOL W/ CODEINE NO. 3 [Concomitant]
  12. LEVOTHYROXINE SODIUM [Concomitant]
  13. ALTACE [Concomitant]

REACTIONS (1)
  - CARDIAC FAILURE CONGESTIVE [None]
